FAERS Safety Report 18688982 (Version 6)
Quarter: 2021Q1

REPORT INFORMATION
  Report Type: Spontaneous
  Country: FR (occurrence: FR)
  Receive Date: 20201231
  Receipt Date: 20210318
  Transmission Date: 20210419
  Serious: Yes (Other)
  Sender: FDA-Public Use
  Company Number: FR-009507513-2012FRA011301

PATIENT
  Age: 54 Year
  Sex: Male

DRUGS (2)
  1. INTERFERON ALFA?2B [Suspect]
     Active Substance: INTERFERON ALFA-2B
     Indication: HAIRY CELL LEUKAEMIA
     Dosage: UNK
  2. AMOXICILLIN. [Suspect]
     Active Substance: AMOXICILLIN
     Indication: HAIRY CELL LEUKAEMIA
     Dosage: UNK

REACTIONS (1)
  - Acute generalised exanthematous pustulosis [Unknown]
